FAERS Safety Report 21642446 (Version 1)
Quarter: 2022Q4

REPORT INFORMATION
  Report Type: Spontaneous
  Country: FR (occurrence: FR)
  Receive Date: 20221125
  Receipt Date: 20221125
  Transmission Date: 20230113
  Serious: Yes (Hospitalization, Other)
  Sender: FDA-Public Use
  Company Number: FR-SA-SAC20221123001555

PATIENT
  Age: 22 Year
  Sex: Male
  Weight: 48 kg

DRUGS (10)
  1. PRIMAQUINE PHOSPHATE [Suspect]
     Active Substance: PRIMAQUINE PHOSPHATE
     Dosage: 30 MG, QD
     Route: 065
     Dates: start: 20140430, end: 20140513
  2. CHLOROQUINE [Suspect]
     Active Substance: CHLOROQUINE
     Dosage: 600 MG, 1X
     Dates: start: 20140420, end: 20140420
  3. CHLOROQUINE [Suspect]
     Active Substance: CHLOROQUINE
     Dosage: 6 HOURS LATER
  4. CHLOROQUINE [Suspect]
     Active Substance: CHLOROQUINE
     Dosage: 300 MG
     Dates: start: 20140421
  5. CHLOROQUINE [Suspect]
     Active Substance: CHLOROQUINE
     Dosage: 300 MG
     Dates: start: 20140422
  6. FERROUS SULFATE [Concomitant]
     Active Substance: FERROUS SULFATE
     Dosage: UNK
  7. LEVOFLOXACIN [Concomitant]
     Active Substance: LEVOFLOXACIN
     Dosage: UNK
  8. AMOXICILLIN [Concomitant]
     Active Substance: AMOXICILLIN
     Dosage: UNK
  9. FOLIC ACID [Concomitant]
     Active Substance: FOLIC ACID
     Dosage: UNK
  10. FERINJECT [Concomitant]
     Active Substance: FERRIC CARBOXYMALTOSE
     Dosage: UNK

REACTIONS (4)
  - Erysipelas [Recovering/Resolving]
  - Malaria [Recovering/Resolving]
  - Plasmodium vivax infection [Recovering/Resolving]
  - Transaminases increased [Recovering/Resolving]

NARRATIVE: CASE EVENT DATE: 20140505
